FAERS Safety Report 21854023 (Version 1)
Quarter: 2023Q1

REPORT INFORMATION
  Report Type: Spontaneous
  Country: US (occurrence: None)
  Receive Date: 20230111
  Receipt Date: 20230111
  Transmission Date: 20230418
  Serious: No
  Sender: FDA-Public Use
  Company Number: None

PATIENT
  Age: 69 Year
  Sex: Male
  Weight: 92.08 kg

DRUGS (12)
  1. TEMOZOLOMIDE [Suspect]
     Active Substance: TEMOZOLOMIDE
     Indication: Brain neoplasm malignant
     Dosage: FREQUENCY : DAILY;?
     Route: 048
  2. AMLODIPINE [Concomitant]
  3. DEXAMETHASONE [Concomitant]
  4. DOCUSATE SODIUM [Concomitant]
  5. FUROSEMIDE [Concomitant]
  6. LEVETIRACETAM [Concomitant]
  7. ONDANSETRON [Concomitant]
     Active Substance: ONDANSETRON
  8. PANTOPRAZOLE [Concomitant]
  9. SPIRONOLACTONE [Concomitant]
  10. SULFAMETHOXAZOLE-TRIMETHOPRIM [Concomitant]
  11. VALSARTAN-HYDROCHLOROTHIAZIDE [Concomitant]
  12. VITAMIN D [Concomitant]

REACTIONS (1)
  - Hospice care [None]
